FAERS Safety Report 23558810 (Version 5)
Quarter: 2024Q4

REPORT INFORMATION
  Report Type: Report from Study
  Country: CA (occurrence: CA)
  Receive Date: 20240223
  Receipt Date: 20241209
  Transmission Date: 20250114
  Serious: Yes (Hospitalization, Other)
  Sender: SAMSUNG BIOEPIS
  Company Number: CA-SAMSUNG BIOEPIS-SB-2023-18361

PATIENT
  Age: 20 Year
  Sex: Female

DRUGS (7)
  1. RENFLEXIS [Suspect]
     Active Substance: INFLIXIMAB-ABDA
     Indication: Crohn^s disease
     Dates: start: 20200127
  2. RENFLEXIS [Suspect]
     Active Substance: INFLIXIMAB-ABDA
     Dosage: UNKNOWN
  3. RENFLEXIS [Suspect]
     Active Substance: INFLIXIMAB-ABDA
     Dosage: UNKNOWN
  4. RENFLEXIS [Suspect]
     Active Substance: INFLIXIMAB-ABDA
     Dosage: UNKNOWN
  5. RENFLEXIS [Suspect]
     Active Substance: INFLIXIMAB-ABDA
  6. RENFLEXIS [Suspect]
     Active Substance: INFLIXIMAB-ABDA
  7. RENFLEXIS [Suspect]
     Active Substance: INFLIXIMAB-ABDA
     Dates: start: 20200127

REACTIONS (17)
  - Sinusitis [Recovered/Resolved]
  - Staphylococcal infection [Recovered/Resolved]
  - Streptococcal infection [Unknown]
  - Skin lesion [Unknown]
  - Fibromyalgia [Unknown]
  - Pharyngitis [Recovered/Resolved]
  - Neuralgia [Unknown]
  - Arthralgia [Not Recovered/Not Resolved]
  - Stomatitis [Recovered/Resolved]
  - Abscess [Unknown]
  - Vaginal infection [Not Recovered/Not Resolved]
  - Tongue haemorrhage [Not Recovered/Not Resolved]
  - Gingival bleeding [Not Recovered/Not Resolved]
  - Aphthous ulcer [Not Recovered/Not Resolved]
  - Abdominal pain [Unknown]
  - Arthropod bite [Unknown]
  - Off label use [Unknown]

NARRATIVE: CASE EVENT DATE: 20230702
